FAERS Safety Report 20104888 (Version 1)
Quarter: 2021Q4

REPORT INFORMATION
  Report Type: Spontaneous
  Country: US (occurrence: US)
  Receive Date: 20211124
  Receipt Date: 20211124
  Transmission Date: 20220303
  Serious: Yes (Other)
  Sender: FDA-Public Use
  Company Number: US-SUN PHARMACEUTICAL INDUSTRIES LTD-2021R1-318542

PATIENT
  Age: 12 Year
  Sex: Male

DRUGS (2)
  1. CLOZAPINE [Interacting]
     Active Substance: CLOZAPINE
     Indication: Psychotic disorder
     Dosage: 525 MILLIGRAM, DAILY
     Route: 065
  2. FLUVOXAMINE [Interacting]
     Active Substance: FLUVOXAMINE
     Indication: Psychotic disorder
     Dosage: 25 MILLIGRAM, DAILY
     Route: 065

REACTIONS (7)
  - Drug interaction [Unknown]
  - Drug level increased [Unknown]
  - Orthostatic hypotension [Unknown]
  - Sedation [Unknown]
  - Enuresis [Unknown]
  - Constipation [Unknown]
  - Vomiting [Unknown]
